FAERS Safety Report 17216199 (Version 1)
Quarter: 2019Q4

REPORT INFORMATION
  Report Type: Spontaneous
  Country: FR (occurrence: FR)
  Receive Date: 20191230
  Receipt Date: 20191230
  Transmission Date: 20200122
  Serious: Yes (Hospitalization, Other)
  Sender: FDA-Public Use
  Company Number: FR-BAYER-2019-236430

PATIENT
  Age: 34 Year
  Sex: Female

DRUGS (1)
  1. KYLEENA [Suspect]
     Active Substance: LEVONORGESTREL
     Dosage: 17.5 MCG/24HR, CONT
     Route: 015
     Dates: start: 20190322

REACTIONS (14)
  - Abdominal pain upper [None]
  - Mental disorder [None]
  - Haemorrhage in pregnancy [None]
  - Uterine hypertonus [None]
  - Amenorrhoea [None]
  - Drug ineffective [None]
  - Scar [None]
  - Back pain [None]
  - Loss of personal independence in daily activities [None]
  - Ruptured ectopic pregnancy [None]
  - Fatigue [None]
  - Ectopic pregnancy with contraceptive device [None]
  - Procedural pain [Recovered/Resolved]
  - Peritoneal haemorrhage [None]

NARRATIVE: CASE EVENT DATE: 201903
